FAERS Safety Report 11037814 (Version 3)
Quarter: 2015Q3

REPORT INFORMATION
  Report Type: Spontaneous
  Country: US (occurrence: US)
  Receive Date: 20150416
  Receipt Date: 20150819
  Transmission Date: 20151125
  Serious: Yes (Hospitalization, Other)
  Sender: FDA-Public Use
  Company Number: US-009507513-1504USA015492

PATIENT
  Sex: Male
  Weight: 106.58 kg

DRUGS (1)
  1. JANUVIA [Suspect]
     Active Substance: SITAGLIPTIN PHOSPHATE
     Indication: TYPE 2 DIABETES MELLITUS
     Dosage: 100 MG, QD
     Route: 048
     Dates: start: 20091022, end: 20130711

REACTIONS (26)
  - Pancreatic carcinoma metastatic [Unknown]
  - Coronary artery bypass [Unknown]
  - Metastases to lymph nodes [Unknown]
  - Hyperlipidaemia [Unknown]
  - Diabetic retinopathy [Unknown]
  - Cardiomyopathy [Unknown]
  - Radiotherapy [Unknown]
  - Anxiety [Unknown]
  - Pancreatectomy [Unknown]
  - Diverticulum [Unknown]
  - Syncope [Unknown]
  - Muscle twitching [Unknown]
  - Wound complication [Recovering/Resolving]
  - Hypoglycaemia [Unknown]
  - Renal failure [Recovered/Resolved]
  - Coronary artery disease [Unknown]
  - Arthritis [Unknown]
  - Atelectasis [Unknown]
  - Pulmonary mass [Unknown]
  - Splenectomy [Unknown]
  - Hypotension [Unknown]
  - Hepatic cirrhosis [Unknown]
  - Balance disorder [Unknown]
  - Cardiac failure congestive [Unknown]
  - Hypertension [Unknown]
  - Pulmonary fibrosis [Unknown]

NARRATIVE: CASE EVENT DATE: 20100830
